FAERS Safety Report 17319549 (Version 2)
Quarter: 2020Q3

REPORT INFORMATION
  Report Type: Spontaneous
  Country: MY (occurrence: MY)
  Receive Date: 20200125
  Receipt Date: 20200824
  Transmission Date: 20201102
  Serious: Yes (Other)
  Sender: FDA-Public Use
  Company Number: MY-ROCHE-2529362

PATIENT
  Age: 50 Year
  Sex: Male

DRUGS (16)
  1. MABTHERA [Suspect]
     Active Substance: RITUXIMAB
     Indication: DIFFUSE LARGE B-CELL LYMPHOMA
     Route: 041
     Dates: start: 20111020
  2. MABTHERA [Suspect]
     Active Substance: RITUXIMAB
     Route: 041
     Dates: start: 20111112, end: 20120305
  3. DEXAMETHASONE. [Suspect]
     Active Substance: DEXAMETHASONE
     Indication: DIFFUSE LARGE B-CELL LYMPHOMA
     Dosage: HYPERCVAD?R
     Route: 065
     Dates: start: 20111112, end: 20120305
  4. METHOTREXATE. [Suspect]
     Active Substance: METHOTREXATE
     Indication: DIFFUSE LARGE B-CELL LYMPHOMA
     Dosage: HYPERCVAD?R
     Route: 065
     Dates: start: 20111112, end: 20120305
  5. DOXORUBICIN [Suspect]
     Active Substance: DOXORUBICIN
     Dosage: HYPERCVAD?R
     Route: 065
     Dates: start: 20111112, end: 20120305
  6. CARBOPLATIN. [Suspect]
     Active Substance: CARBOPLATIN
     Indication: DIFFUSE LARGE B-CELL LYMPHOMA
     Route: 065
     Dates: start: 20120417
  7. VINCRISTINE [Suspect]
     Active Substance: VINCRISTINE
     Dosage: HYPERCVAD?R
     Route: 065
     Dates: start: 20111112, end: 20120305
  8. PREDNISOLONE. [Suspect]
     Active Substance: PREDNISOLONE
     Indication: DIFFUSE LARGE B-CELL LYMPHOMA
     Dosage: RCHOP
     Route: 065
     Dates: start: 20111020
  9. CYTARABINE. [Suspect]
     Active Substance: CYTARABINE
     Dosage: HYPERCVAD?R
     Route: 065
     Dates: start: 20111112, end: 20120305
  10. CYTARABINE. [Suspect]
     Active Substance: CYTARABINE
     Route: 065
     Dates: start: 20120417
  11. PROCARBAZINE [Suspect]
     Active Substance: PROCARBAZINE
     Indication: DIFFUSE LARGE B-CELL LYMPHOMA
     Route: 065
     Dates: start: 2020
  12. CYCLOPHOSPHAMIDE. [Suspect]
     Active Substance: CYCLOPHOSPHAMIDE
     Indication: DIFFUSE LARGE B-CELL LYMPHOMA
     Dosage: RCHOP
     Route: 065
     Dates: start: 20111020
  13. CYCLOPHOSPHAMIDE. [Suspect]
     Active Substance: CYCLOPHOSPHAMIDE
     Dosage: HYPERCVAD?R
     Route: 065
     Dates: start: 20111112, end: 20120305
  14. VINCRISTINE [Suspect]
     Active Substance: VINCRISTINE
     Indication: DIFFUSE LARGE B-CELL LYMPHOMA
     Dosage: RCHOP
     Route: 065
     Dates: start: 20111020
  15. DOXORUBICIN [Suspect]
     Active Substance: DOXORUBICIN
     Indication: DIFFUSE LARGE B-CELL LYMPHOMA
     Dosage: RCHOP
     Route: 065
     Dates: start: 20111020
  16. CYTARABINE. [Suspect]
     Active Substance: CYTARABINE
     Indication: DIFFUSE LARGE B-CELL LYMPHOMA
     Route: 065
     Dates: start: 20111020

REACTIONS (13)
  - Disease recurrence [Unknown]
  - Diarrhoea [Unknown]
  - Visual acuity reduced [Unknown]
  - Influenza [Unknown]
  - Coronary artery disease [Unknown]
  - Off label use [Unknown]
  - Sepsis [Unknown]
  - Abdominal pain [Unknown]
  - Intentional product misuse [Unknown]
  - Bronchitis [Unknown]
  - Pneumonia [Unknown]
  - Chronic sinusitis [Unknown]
  - Proctitis [Unknown]

NARRATIVE: CASE EVENT DATE: 20120828
